FAERS Safety Report 24742644 (Version 1)
Quarter: 2024Q4

REPORT INFORMATION
  Report Type: Spontaneous
  Country: PT (occurrence: PT)
  Receive Date: 20241217
  Receipt Date: 20241217
  Transmission Date: 20250115
  Serious: Yes (Other)
  Sender: AMGEN
  Company Number: PT-AMGEN-PRTSP2024246191

PATIENT
  Sex: Female

DRUGS (2)
  1. TRASTUZUMAB [Suspect]
     Active Substance: TRASTUZUMAB
     Indication: Breast cancer metastatic
     Dosage: UNK
     Route: 058
     Dates: start: 20180202, end: 201803
  2. NAVELBINE [Suspect]
     Active Substance: VINORELBINE TARTRATE
     Indication: Breast cancer metastatic
     Dosage: 80 MILLIGRAM/SQ. METER, QWK
     Route: 048
     Dates: start: 20180202, end: 201803

REACTIONS (2)
  - Ischaemic neuropathy [Unknown]
  - Aortic thrombosis [Unknown]
